FAERS Safety Report 9363055 (Version 3)
Quarter: 2013Q3

REPORT INFORMATION
  Report Type: Spontaneous
  Country: US (occurrence: US)
  Receive Date: 20130624
  Receipt Date: 20130830
  Transmission Date: 20140515
  Serious: No
  Sender: FDA-Public Use
  Company Number: US-PFIZER INC-2013184558

PATIENT
  Sex: Female

DRUGS (2)
  1. XELJANZ [Suspect]
     Dosage: UNK
  2. XELJANZ [Suspect]
     Dosage: UNK, DAILY

REACTIONS (2)
  - Laryngitis [Unknown]
  - General physical health deterioration [Unknown]
